FAERS Safety Report 18278235 (Version 1)
Quarter: 2020Q3

REPORT INFORMATION
  Report Type: Spontaneous
  Country: IE (occurrence: IE)
  Receive Date: 20200917
  Receipt Date: 20200917
  Transmission Date: 20201103
  Serious: Yes (Other)
  Sender: FDA-Public Use
  Company Number: IE-MYLANLABS-2020M1078457

PATIENT
  Age: 83 Year
  Sex: Male

DRUGS (3)
  1. PREDNISOLONE. [Concomitant]
     Active Substance: PREDNISOLONE
     Indication: INFECTIVE EXACERBATION OF BRONCHIECTASIS
     Dosage: TAPERING PO PREDNISOLONE DAILY. COMMENCED 30 MG ON 08/AUG/2020 AND TO BE REDUCED BY 5MG QD TO 0
     Route: 048
     Dates: start: 20200808
  2. AZTREONAM. [Suspect]
     Active Substance: AZTREONAM
     Indication: INFECTIVE EXACERBATION OF BRONCHIECTASIS
     Dosage: 2 DOSES; AFTERNOON AND AN EVENING DOSE
     Route: 042
     Dates: start: 20200808, end: 20200808
  3. PIPERACILLIN,TAZOBACTAM MYLAN [Suspect]
     Active Substance: PIPERACILLIN SODIUM\TAZOBACTAM SODIUM
     Indication: INFECTIVE EXACERBATION OF BRONCHIECTASIS
     Dosage: 2 DOSES; AFTERNOON AND AN EVENING DOSE
     Route: 042
     Dates: start: 20200808, end: 20200808

REACTIONS (4)
  - Pyrexia [Unknown]
  - Dyspnoea [Unknown]
  - Flushing [Unknown]
  - Malaise [Unknown]

NARRATIVE: CASE EVENT DATE: 20200808
